FAERS Safety Report 5053576-8 (Version None)
Quarter: 2006Q3

REPORT INFORMATION
  Report Type: 
  Country: None (occurrence: None)
  Receive Date: 20060718
  Receipt Date: 20060523
  Transmission Date: 20061208
  Serious: Yes (Hospitalization)
  Sender: FDA-Public Use
  Company Number: MX-BRISTOL-MYERS SQUIBB COMPANY-13387220

PATIENT
  Age: 66 Year
  Sex: Female

DRUGS (2)
  1. CAPTOPRIL [Suspect]
     Indication: ESSENTIAL HYPERTENSION
     Dosage: DURATION: 6 YEARS
  2. RAMIPRIL [Concomitant]
     Indication: BLOOD PRESSURE INCREASED

REACTIONS (1)
  - HYPOGLYCAEMIA [None]
